FAERS Safety Report 8881926 (Version 1)
Quarter: 2012Q4

REPORT INFORMATION
  Report Type: 
  Country: US (occurrence: US)
  Receive Date: 20121102
  Receipt Date: 20121102
  Transmission Date: 20130627
  Serious: Yes (Hospitalization)
  Sender: FDA-Public Use
  Company Number: US-JNJFOC-20121013840

PATIENT
  Sex: Female

DRUGS (5)
  1. REMICADE [Suspect]
     Indication: PSORIATIC ARTHROPATHY
     Route: 042
  2. REMICADE [Suspect]
     Indication: PSORIATIC ARTHROPATHY
     Route: 042
     Dates: start: 201208, end: 201208
  3. TYLENOL [Suspect]
     Route: 065
  4. TYLENOL [Suspect]
     Indication: PREMEDICATION
     Route: 065
     Dates: start: 201208, end: 201208
  5. BENADRYL [Suspect]
     Indication: PREMEDICATION
     Route: 065
     Dates: start: 201208, end: 201208

REACTIONS (1)
  - Type IV hypersensitivity reaction [Recovered/Resolved]
